FAERS Safety Report 6054022-8 (Version None)
Quarter: 2009Q1

REPORT INFORMATION
  Report Type: 
  Country: None (occurrence: None)
  Receive Date: 20090123
  Receipt Date: 20090123
  Transmission Date: 20090719
  Serious: Yes (Other)
  Sender: FDA-Public Use
  Company Number: None

PATIENT
  Age: 21 Year
  Sex: Female
  Weight: 54.4316 kg

DRUGS (1)
  1. MIRENA [Suspect]
     Indication: CONTRACEPTION
     Dosage: DAILY INTRA-UTERINE
     Route: 015
     Dates: start: 20081105, end: 20090122

REACTIONS (5)
  - ALOPECIA [None]
  - GENITAL HAEMORRHAGE [None]
  - HAEMORRHAGE [None]
  - MENORRHAGIA [None]
  - MUSCLE SPASMS [None]
